FAERS Safety Report 5465600-9 (Version None)
Quarter: 2007Q3

REPORT INFORMATION
  Report Type: 
  Country: None (occurrence: None)
  Receive Date: 20070924
  Receipt Date: 20070913
  Transmission Date: 20080115
  Serious: Yes (Death, Hospitalization)
  Sender: FDA-Public Use
  Company Number: US-AVENTIS-200718506GDDC

PATIENT
  Age: 67 Year
  Sex: Male
  Weight: 58.05 kg

DRUGS (2)
  1. DOCETAXEL [Suspect]
     Dosage: DOSE: UNK
     Route: 042
     Dates: start: 20070329
  2. CODE UNBROKEN [Suspect]
     Dosage: DOSE: 250 MG OR PLACEBO DAILY UNTIL PROGRESSION (TOTAL DOSE ADMINISTERED THIS COURSE: 7000 MG)
     Route: 048
     Dates: start: 20070329, end: 20070618

REACTIONS (1)
  - POST PROCEDURAL HAEMORRHAGE [None]
